FAERS Safety Report 16627144 (Version 1)
Quarter: 2019Q3

REPORT INFORMATION
  Report Type: Report from Study
  Country: US (occurrence: US)
  Receive Date: 20190724
  Receipt Date: 20190724
  Transmission Date: 20191004
  Serious: Yes (Death, Hospitalization, Other)
  Sender: FDA-Public Use
  Company Number: US-ACTELION-A-NJ2019-187100

PATIENT
  Age: 55 Year
  Sex: Female
  Weight: 77.55 kg

DRUGS (9)
  1. VELETRI [Suspect]
     Active Substance: EPOPROSTENOL
     Dosage: 22 NG/KG, PER MIN
     Route: 042
  2. REVATIO [Concomitant]
     Active Substance: SILDENAFIL CITRATE
  3. OPSUMIT [Suspect]
     Active Substance: MACITENTAN
     Indication: PULMONARY ARTERIAL HYPERTENSION
     Dosage: 10 MG, QD
     Route: 048
  4. ORENITRAM [Suspect]
     Active Substance: TREPROSTINIL
     Indication: PRODUCT USED FOR UNKNOWN INDICATION
     Route: 065
  5. LETAIRIS [Concomitant]
     Active Substance: AMBRISENTAN
     Indication: PULMONARY ARTERIAL HYPERTENSION
  6. VELETRI [Suspect]
     Active Substance: EPOPROSTENOL
     Indication: PULMONARY ARTERIAL HYPERTENSION
     Dosage: 12 NG/KG, PER MIN
     Route: 042
  7. ADCIRCA [Concomitant]
     Active Substance: TADALAFIL
     Indication: PULMONARY ARTERIAL HYPERTENSION
  8. VELETRI [Suspect]
     Active Substance: EPOPROSTENOL
     Dosage: 16 NG/KG, PER MIN
     Route: 042
  9. ELIQUIS [Concomitant]
     Active Substance: APIXABAN

REACTIONS (28)
  - Night sweats [Unknown]
  - Hypersomnia [Unknown]
  - Fluid retention [Recovering/Resolving]
  - Death [Fatal]
  - Dyspnoea [Unknown]
  - Insomnia [Unknown]
  - Hospitalisation [Unknown]
  - Pollakiuria [Unknown]
  - Catheter site erythema [Unknown]
  - Weight decreased [Recovering/Resolving]
  - Gastrointestinal disorder [Unknown]
  - Dry skin [Not Recovered/Not Resolved]
  - Pain [Unknown]
  - Catheter site irritation [Recovering/Resolving]
  - Arthralgia [Unknown]
  - Nausea [Unknown]
  - Exercise tolerance decreased [Unknown]
  - Urinary incontinence [Unknown]
  - Oedema [Unknown]
  - Pruritus [Unknown]
  - Abdominal distension [Recovering/Resolving]
  - Oxygen saturation decreased [Unknown]
  - Headache [Unknown]
  - Food poisoning [Unknown]
  - Fatigue [Unknown]
  - Diarrhoea [Unknown]
  - Palpitations [Unknown]
  - Catheter site pruritus [Unknown]

NARRATIVE: CASE EVENT DATE: 20190715
